FAERS Safety Report 8251323-X (Version None)
Quarter: 2012Q2

REPORT INFORMATION
  Report Type: 
  Country: None (occurrence: None)
  Receive Date: 20120402
  Receipt Date: 20110610
  Transmission Date: 20120825
  Serious: Yes (Hospitalization)
  Sender: FDA-Public Use
  Company Number: US-GLAXOSMITHKLINE-A0934570A

PATIENT
  Age: 51 Year

DRUGS (1)
  1. AVANDIA [Suspect]
     Indication: DIABETES MELLITUS
     Route: 048

REACTIONS (10)
  - FUNGAL INFECTION [None]
  - BLOOD URINE PRESENT [None]
  - DIZZINESS [None]
  - ABDOMINAL DISCOMFORT [None]
  - LOSS OF CONSCIOUSNESS [None]
  - NAUSEA [None]
  - SINUS DISORDER [None]
  - VISION BLURRED [None]
  - SYNCOPE [None]
  - DECREASED APPETITE [None]
